FAERS Safety Report 18531142 (Version 2)
Quarter: 2021Q1

REPORT INFORMATION
  Report Type: Report from Study
  Country: CO (occurrence: CO)
  Receive Date: 20201122
  Receipt Date: 20210104
  Transmission Date: 20210419
  Serious: Yes (Hospitalization)
  Sender: FDA-Public Use
  Company Number: PHHY2019CO212854

PATIENT
  Sex: Male
  Weight: 74 kg

DRUGS (2)
  1. JADENU [Suspect]
     Active Substance: DEFERASIROX
     Indication: MYELODYSPLASTIC SYNDROME
     Dosage: 1080 MG, QD
     Route: 048
     Dates: start: 20190830
  2. JADENU [Suspect]
     Active Substance: DEFERASIROX
     Dosage: 360 MG, QD
     Route: 048

REACTIONS (5)
  - Platelet count decreased [Unknown]
  - Red blood cell count decreased [Unknown]
  - Dyspnoea [Unknown]
  - Malaise [Unknown]
  - Agitation [Unknown]
